FAERS Safety Report 20374190 (Version 2)
Quarter: 2022Q1

REPORT INFORMATION
  Report Type: Spontaneous
  Country: US (occurrence: US)
  Receive Date: 20220125
  Receipt Date: 20220222
  Transmission Date: 20220423
  Serious: Yes (Hospitalization, Other)
  Sender: FDA-Public Use
  Company Number: US-PFIZER INC-202101597051

PATIENT
  Age: 62 Year
  Sex: Female
  Weight: 46.5 kg

DRUGS (6)
  1. IBRANCE [Suspect]
     Active Substance: PALBOCICLIB
     Indication: Breast cancer female
     Dosage: 125 MG, DAILY
     Route: 048
     Dates: start: 20211031, end: 20211105
  2. IBRANCE [Suspect]
     Active Substance: PALBOCICLIB
     Indication: Hormone level abnormal
     Dosage: 125 MG, 1X/DAY
     Dates: start: 20211101
  3. ZEFAN [Concomitant]
     Indication: Nausea
     Dosage: 8 MG, 3X/DAY
     Dates: start: 20211012
  4. OXYCODONE [Concomitant]
     Active Substance: OXYCODONE
     Indication: Pain
     Dosage: 5 MG, AS NEEDED ((Q8H PRN))
     Dates: start: 20211123
  5. FLAGYL [Concomitant]
     Active Substance: METRONIDAZOLE\METRONIDAZOLE HYDROCHLORIDE
     Indication: Fungal infection
     Dosage: UNK, 2X/DAY
     Route: 061
     Dates: start: 20210610
  6. LETROZOLE [Concomitant]
     Active Substance: LETROZOLE
     Dosage: 2.5 MG
     Dates: start: 202112

REACTIONS (5)
  - COVID-19 [Recovering/Resolving]
  - Nausea [Recovering/Resolving]
  - Vomiting [Recovering/Resolving]
  - Dehydration [Recovered/Resolved]
  - Haemoglobin decreased [Recovered/Resolved]

NARRATIVE: CASE EVENT DATE: 20211108
